FAERS Safety Report 8769137 (Version 1)
Quarter: 2012Q4

REPORT INFORMATION
  Report Type: 
  Country: CN (occurrence: CN)
  Receive Date: 20120905
  Receipt Date: 20120905
  Transmission Date: 20130627
  Serious: Yes (Hospitalization)
  Sender: FDA-Public Use
  Company Number: CN-ASTRAZENECA-2012SE66013

PATIENT
  Age: 61 Year
  Sex: Male
  Weight: 55.8 kg

DRUGS (6)
  1. RHINOCORT [Suspect]
     Indication: NASAL INFLAMMATION
     Route: 045
     Dates: start: 201011
  2. RHINOCORT [Suspect]
     Indication: NASAL INFLAMMATION
     Route: 045
  3. FELODIPINE [Concomitant]
     Indication: CORONARY ARTERY DISEASE
  4. FELODIPINE [Concomitant]
     Indication: ANGINA PECTORIS
  5. ROSUVASTATIN [Concomitant]
     Indication: HYPERLIPASAEMIA
     Route: 048
     Dates: start: 20100501, end: 20110325
  6. CANGERZI [Concomitant]
     Route: 048
     Dates: start: 201011

REACTIONS (10)
  - Cardiac discomfort [Unknown]
  - Epistaxis [Recovered/Resolved]
  - Sputum abnormal [Unknown]
  - Hypoaesthesia [Unknown]
  - Hypoaesthesia [Unknown]
  - Dyspnoea [Unknown]
  - Chest discomfort [Unknown]
  - Dry throat [Unknown]
  - Thirst [Unknown]
  - Rash [Unknown]
